FAERS Safety Report 25683823 (Version 1)
Quarter: 2025Q3

REPORT INFORMATION
  Report Type: Spontaneous
  Country: US (occurrence: US)
  Receive Date: 20250814
  Receipt Date: 20250814
  Transmission Date: 20251021
  Serious: No
  Sender: ABBVIE
  Company Number: US-ABBVIE-6415625

PATIENT
  Age: 35 Year
  Sex: Male

DRUGS (1)
  1. DEPAKOTE ER [Suspect]
     Active Substance: DIVALPROEX SODIUM
     Indication: Epilepsy
     Route: 048

REACTIONS (2)
  - Autism spectrum disorder [Unknown]
  - Vomiting [Unknown]
